FAERS Safety Report 7788945-6 (Version None)
Quarter: 2011Q3

REPORT INFORMATION
  Report Type: 
  Country: None (occurrence: None)
  Receive Date: 20110930
  Receipt Date: 20110926
  Transmission Date: 20111222
  Serious: Yes (Death, Other)
  Sender: FDA-Public Use
  Company Number: PHEH2010US03504

PATIENT
  Sex: Female

DRUGS (19)
  1. WARFARIN SODIUM [Concomitant]
  2. PERIDEX [Concomitant]
  3. CELEXA [Concomitant]
     Dosage: 10 MG, QHS
     Route: 048
  4. LOVENOX [Concomitant]
  5. LETROZOLE [Concomitant]
  6. OMEPRAZOLE [Concomitant]
  7. PEN-VEE K [Concomitant]
     Dosage: 500 MG, QID
  8. AMOXICILLIN [Concomitant]
  9. COUMADIN [Concomitant]
  10. TAMOXIFEN CITRATE [Concomitant]
  11. PAXIL [Concomitant]
  12. CLINDAMYCIN [Concomitant]
     Dosage: 300 MG, TID
     Route: 048
  13. FEMARA [Concomitant]
  14. VICODIN [Concomitant]
  15. FLAGYL [Concomitant]
     Dosage: 500 MG, TID
  16. ZOMETA [Suspect]
     Indication: BREAST CANCER METASTATIC
     Dates: start: 20070101
  17. HERCEPTIN [Concomitant]
  18. ESTRADIOL [Concomitant]
  19. TYLENOL-500 [Concomitant]

REACTIONS (30)
  - EXPOSED BONE IN JAW [None]
  - OSTEOMYELITIS [None]
  - DEATH [None]
  - DEPRESSION [None]
  - JAW FRACTURE [None]
  - PRIMARY SEQUESTRUM [None]
  - RIB FRACTURE [None]
  - MUSCLE SPASMS [None]
  - PATHOLOGICAL FRACTURE [None]
  - BACTERIAL DISEASE CARRIER [None]
  - OSTEONECROSIS OF JAW [None]
  - SWELLING FACE [None]
  - ERYTHEMA [None]
  - FACIAL PAIN [None]
  - INJURY [None]
  - EMOTIONAL DISTRESS [None]
  - ANXIETY [None]
  - PAIN IN JAW [None]
  - PARAESTHESIA ORAL [None]
  - OPEN WOUND [None]
  - PAIN [None]
  - DEFORMITY [None]
  - DYSPNOEA EXERTIONAL [None]
  - TOOTH LOSS [None]
  - ARTHRITIS [None]
  - NASAL CONGESTION [None]
  - THYROID DISORDER [None]
  - ABSCESS [None]
  - OSTEOSCLEROSIS [None]
  - METASTASES TO BONE [None]
